FAERS Safety Report 8537647-7 (Version None)
Quarter: 2012Q3

REPORT INFORMATION
  Report Type: 
  Country: None (occurrence: None)
  Receive Date: 20120725
  Receipt Date: 20120716
  Transmission Date: 20120928
  Serious: Yes (Other)
  Sender: FDA-Public Use
  Company Number: PHHY2012VE062891

PATIENT
  Sex: Female

DRUGS (1)
  1. CATAFLAM [Suspect]
     Indication: PYREXIA
     Dosage: 12 DRP, UNK
     Route: 048
     Dates: start: 20120711

REACTIONS (2)
  - DRUG INEFFECTIVE [None]
  - PHARYNGITIS [None]
